FAERS Safety Report 7974161-1 (Version None)
Quarter: 2011Q4

REPORT INFORMATION
  Report Type: 
  Country: None (occurrence: None)
  Receive Date: 20111213
  Receipt Date: 20111207
  Transmission Date: 20120403
  Serious: Yes (Other)
  Sender: FDA-Public Use
  Company Number: DE-GLAXOSMITHKLINE-A0957590A

PATIENT
  Sex: Male

DRUGS (1)
  1. NICORETTE [Suspect]
     Route: 002
     Dates: start: 20100101

REACTIONS (1)
  - TYPE 2 DIABETES MELLITUS [None]
